FAERS Safety Report 17486158 (Version 1)
Quarter: 2020Q1

REPORT INFORMATION
  Report Type: Spontaneous
  Country: US (occurrence: US)
  Receive Date: 20200303
  Receipt Date: 20200303
  Transmission Date: 20200409
  Serious: No
  Sender: FDA-Public Use
  Company Number: US-BIOGEN-2019BI00775747

PATIENT
  Age: 51 Year
  Sex: Female

DRUGS (2)
  1. TECFIDERA [Suspect]
     Active Substance: DIMETHYL FUMARATE
     Route: 048
     Dates: start: 20190807
  2. TECFIDERA [Suspect]
     Active Substance: DIMETHYL FUMARATE
     Indication: MULTIPLE SCLEROSIS
     Route: 048
     Dates: start: 20190812, end: 201908

REACTIONS (10)
  - Dizziness [Unknown]
  - Lyme disease [Not Recovered/Not Resolved]
  - Pain in extremity [Unknown]
  - Rash papular [Not Recovered/Not Resolved]
  - Product dose omission [Unknown]
  - Nausea [Recovered/Resolved]
  - Asthenia [Unknown]
  - Gait disturbance [Unknown]
  - Hypersomnia [Unknown]
  - Balance disorder [Unknown]

NARRATIVE: CASE EVENT DATE: 20200227
